FAERS Safety Report 11169666 (Version 3)
Quarter: 2016Q3

REPORT INFORMATION
  Report Type: Report from Study
  Country: KR (occurrence: KR)
  Receive Date: 20150605
  Receipt Date: 20160923
  Transmission Date: 20161109
  Serious: No
  Sender: FDA-Public Use
  Company Number: PHHY2015KR061552

PATIENT
  Age: 56 Year
  Sex: Female

DRUGS (5)
  1. HYALURONATE NA [Concomitant]
     Indication: BLEPHARITIS
     Dosage: 0.4 ML, UNK
     Route: 047
     Dates: start: 20121128, end: 20140728
  2. TASIGNA [Suspect]
     Active Substance: NILOTINIB
     Dosage: 600 MG, QD
     Route: 048
     Dates: start: 20140626
  3. OFAL//OFLOXACIN [Concomitant]
     Indication: BLEPHARITIS
     Dosage: 2 DF, UNK
     Route: 047
     Dates: start: 20121128, end: 20140728
  4. ALBIS [Concomitant]
     Active Substance: BISMUTH SUBCITRATE\RANITIDINE HYDROCHLORIDE\SUCRALFATE
     Indication: ABDOMINAL PAIN UPPER
     Dosage: 1 DF, UNK
     Route: 048
     Dates: start: 20140529, end: 20140625
  5. TASIGNA [Suspect]
     Active Substance: NILOTINIB
     Indication: CHRONIC MYELOID LEUKAEMIA
     Dosage: 400 MG, QD
     Route: 048
     Dates: start: 20140529, end: 20140625

REACTIONS (3)
  - Rash [Recovered/Resolved]
  - Alopecia [Not Recovered/Not Resolved]
  - Arthralgia [Not Recovered/Not Resolved]

NARRATIVE: CASE EVENT DATE: 20140925
